FAERS Safety Report 5422474-X (Version None)
Quarter: 2007Q3

REPORT INFORMATION
  Report Type: 
  Country: None (occurrence: None)
  Receive Date: 20070820
  Receipt Date: 20070814
  Transmission Date: 20080115
  Serious: Yes (Death)
  Sender: FDA-Public Use
  Company Number: 2007SP016543

PATIENT
  Age: 55 Year
  Sex: Female

DRUGS (1)
  1. INTERFERON [Suspect]
     Indication: HEPATITIS C

REACTIONS (1)
  - HAEMORRHAGE [None]
